FAERS Safety Report 7361994-8 (Version None)
Quarter: 2011Q1

REPORT INFORMATION
  Report Type: 
  Country: None (occurrence: None)
  Receive Date: 20110318
  Receipt Date: 20110315
  Transmission Date: 20110831
  Serious: Yes (Hospitalization)
  Sender: FDA-Public Use
  Company Number: DE-ELI_LILLY_AND_COMPANY-DE201103004483

PATIENT
  Age: 61 Year
  Sex: Male

DRUGS (17)
  1. ARICLAIM [Concomitant]
  2. GABAPENTINE [Concomitant]
  3. OMEPRAZOLE [Concomitant]
  4. LANTUS [Concomitant]
     Dosage: UNK, UNK
  5. MOLSIDOMINE [Concomitant]
  6. TRAMADOL HCL [Concomitant]
  7. EXFORGE [Concomitant]
  8. HUMALOG [Suspect]
     Indication: DIABETES MELLITUS
     Route: 058
  9. ASPIRIN [Concomitant]
     Dosage: UNK, UNK
  10. METAMIZOLE [Concomitant]
  11. INEGY [Concomitant]
  12. ALLOPURINOL [Concomitant]
     Dosage: UNK, UNK
  13. PLAVIX [Concomitant]
  14. MELPERONE [Concomitant]
  15. HYDROMORPHONE HCL [Concomitant]
  16. BISOPROLOL FUMARATE [Concomitant]
  17. FUROSEMIDE [Concomitant]

REACTIONS (1)
  - SURGICAL VASCULAR SHUNT [None]
